FAERS Safety Report 9633777 (Version 1)
Quarter: 2013Q4

REPORT INFORMATION
  Report Type: Spontaneous
  Country: US (occurrence: US)
  Receive Date: 20131021
  Receipt Date: 20131021
  Transmission Date: 20140711
  Serious: No
  Sender: FDA-Public Use
  Company Number: US-PFIZER INC-2013295973

PATIENT
  Sex: Female

DRUGS (3)
  1. ERYTHROMYCIN [Suspect]
     Dosage: UNK
  2. ACCUPRIL [Suspect]
     Dosage: UNK
  3. NEXIUM [Suspect]
     Dosage: UNK

REACTIONS (1)
  - Drug hypersensitivity [Unknown]
